FAERS Safety Report 6107390-2 (Version None)
Quarter: 2009Q1

REPORT INFORMATION
  Report Type: 
  Country: None (occurrence: None)
  Receive Date: 20090309
  Receipt Date: 20090305
  Transmission Date: 20090719
  Serious: Yes (Other)
  Sender: FDA-Public Use
  Company Number: US-BRISTOL-MYERS SQUIBB COMPANY-14532337

PATIENT
  Sex: Female

DRUGS (1)
  1. COUMADIN [Suspect]
     Dosage: COUMADIN WAS DOWN TO 9

REACTIONS (3)
  - DRUG LEVEL DECREASED [None]
  - FLUID RETENTION [None]
  - HAEMOPTYSIS [None]
